FAERS Safety Report 23388293 (Version 1)
Quarter: 2024Q1

REPORT INFORMATION
  Report Type: Report from Study
  Country: US (occurrence: None)
  Receive Date: 20240110
  Receipt Date: 20240110
  Transmission Date: 20240409
  Serious: Yes (Death, Other)
  Sender: FDA-Public Use
  Company Number: 2024A006865

PATIENT
  Sex: Female

DRUGS (1)
  1. LYNPARZA [Suspect]
     Active Substance: OLAPARIB
     Indication: Retroperitoneum cyst
     Dosage: TAKE 1 TABLET BY MOUTH IN THE MORNING AND 2 TABLETS IN THE EVENING
     Route: 048
     Dates: start: 202103

REACTIONS (2)
  - Death [Fatal]
  - Underdose [Unknown]
